FAERS Safety Report 4801868-7 (Version None)
Quarter: 2005Q3

REPORT INFORMATION
  Report Type: 
  Country: None (occurrence: None)
  Receive Date: 20050929
  Receipt Date: 20050609
  Transmission Date: 20060218
  Serious: Yes (Death)
  Sender: FDA-Public Use
  Company Number: 05P-163-0302749-00

PATIENT
  Age: 66 Year
  Sex: Female

DRUGS (15)
  1. HUMIRA [Suspect]
     Indication: RHEUMATOID ARTHRITIS
     Dosage: 40 MG, 1 IN 1 D
     Dates: start: 20041109
  2. METHOTREXATE SODIUM [Concomitant]
  3. DIAZEPAM [Concomitant]
  4. WARFARIN SODIUM [Concomitant]
  5. VERAPAMIL [Concomitant]
  6. MOMETASONE FUROATE [Concomitant]
  7. ADVAIR DISKUS 100/50 [Concomitant]
  8. HUMABID [Concomitant]
  9. TELMISARTAN [Concomitant]
  10. METHYLPREDNISOLONE [Concomitant]
  11. VICODIN [Concomitant]
  12. GABAPENTIN [Concomitant]
  13. FENTANYL [Concomitant]
  14. ZOPINEX [Concomitant]
  15. INSULIN [Concomitant]

REACTIONS (1)
  - DEATH [None]
